FAERS Safety Report 8090205-3 (Version None)
Quarter: 2012Q1

REPORT INFORMATION
  Report Type: 
  Country: None (occurrence: None)
  Receive Date: 20120129
  Receipt Date: 20111123
  Transmission Date: 20120608
  Serious: No
  Sender: FDA-Public Use
  Company Number: US-ABBOTT-11P-163-0854323-00

PATIENT
  Age: 18 Year
  Sex: Female

DRUGS (2)
  1. MERCAPTOPURINE [Concomitant]
     Indication: COLITIS
     Dosage: NOT REPORTED
  2. HUMIRA [Suspect]
     Indication: COLITIS ULCERATIVE
     Dates: start: 20110701, end: 20110912

REACTIONS (14)
  - PLATELET COUNT DECREASED [None]
  - FEELING HOT [None]
  - NAUSEA [None]
  - BLOOD IRON DECREASED [None]
  - DIZZINESS [None]
  - PYREXIA [None]
  - DIARRHOEA [None]
  - ACNE [None]
  - INFLUENZA LIKE ILLNESS [None]
  - SERUM FERRITIN DECREASED [None]
  - FATIGUE [None]
  - DECREASED APPETITE [None]
  - COLITIS ULCERATIVE [None]
  - RASH PAPULAR [None]
